FAERS Safety Report 6680050-5 (Version None)
Quarter: 2010Q2

REPORT INFORMATION
  Report Type: 
  Country: None (occurrence: None)
  Receive Date: 20100413
  Receipt Date: 20100331
  Transmission Date: 20101027
  Serious: Yes (Death, Life-Threatening, Hospitalization)
  Sender: FDA-Public Use
  Company Number: JP-AMGEN-US386856

PATIENT
  Age: 65 Year
  Sex: Female

DRUGS (2)
  1. ENBREL [Suspect]
     Indication: RHEUMATOID ARTHRITIS
     Route: 058
     Dates: start: 20080605, end: 20091210
  2. RHEUMATREX [Concomitant]
     Indication: RHEUMATOID ARTHRITIS
     Dosage: UNSPECIFIED
     Route: 048
     Dates: start: 20070405, end: 20091210

REACTIONS (5)
  - CARDIAC FAILURE [None]
  - CARDIAC MYXOMA [None]
  - CORONARY ARTERY EMBOLISM [None]
  - MYOCARDIAL INFARCTION [None]
  - PANCREATIC CARCINOMA METASTATIC [None]
